FAERS Safety Report 5312747-3 (Version None)
Quarter: 2007Q2

REPORT INFORMATION
  Report Type: 
  Country: None (occurrence: None)
  Receive Date: 20070430
  Receipt Date: 20070420
  Transmission Date: 20071010
  Serious: Yes (Death, Life-Threatening, Hospitalization, Other)
  Sender: FDA-Public Use
  Company Number: DE-GENENTECH-238612

PATIENT
  Sex: Male
  Weight: 75 kg

DRUGS (12)
  1. MABTHERA [Suspect]
     Indication: NON-HODGKIN'S LYMPHOMA
     Dosage: 700 MG, UNK
     Dates: start: 20060913, end: 20070101
  2. ENDOXAN [Concomitant]
     Indication: NON-HODGKIN'S LYMPHOMA
     Dosage: 1400 MG, Q3W
     Dates: start: 20060914, end: 20061201
  3. DOXORUBICIN HCL [Concomitant]
     Indication: NON-HODGKIN'S LYMPHOMA
     Dosage: 92.5 MG, Q3W
     Dates: start: 20060914, end: 20061201
  4. VINCRISTINE [Concomitant]
     Indication: NON-HODGKIN'S LYMPHOMA
     Dosage: 2 MG, Q3W
     Route: 040
     Dates: start: 20060914, end: 20061201
  5. PREDNISOLONE [Concomitant]
     Indication: NON-HODGKIN'S LYMPHOMA
     Dosage: 100 MG, UNK
     Route: 048
  6. MESNA [Concomitant]
     Indication: DRUG USE FOR UNKNOWN INDICATION
     Dosage: 400 MG, UNK
     Route: 048
  7. METOCLOPRAMIDE [Concomitant]
     Indication: NAUSEA
     Route: 048
  8. CLEMASTINE FUMARATE [Concomitant]
     Indication: VOMITING
  9. PARACETAMOL [Concomitant]
     Indication: VOMITING
     Route: 048
  10. PALONOSETRON [Concomitant]
     Indication: VOMITING
  11. ASTAXANTHIN [Concomitant]
     Indication: VOMITING
  12. DEXAMETHASONE 0.5MG TAB [Concomitant]
     Indication: VOMITING

REACTIONS (2)
  - HEPATIC FAILURE [None]
  - SKIN REACTION [None]
